FAERS Safety Report 9310062 (Version 3)
Quarter: 2015Q4

REPORT INFORMATION
  Report Type: Spontaneous
  Country: US (occurrence: US)
  Receive Date: 20130527
  Receipt Date: 20151028
  Transmission Date: 20160305
  Serious: Yes (Death)
  Sender: FDA-Public Use
  Company Number: US-AMGEN-USASP2013036833

PATIENT
  Age: 56 Year
  Sex: Male

DRUGS (28)
  1. NEULASTA [Concomitant]
     Active Substance: PEGFILGRASTIM
     Dosage: 6 MG/ML, UNK
  2. VAGIFEM [Concomitant]
     Active Substance: ESTRADIOL
     Dosage: UNK
  3. LENALIDOMIDE [Concomitant]
     Active Substance: LENALIDOMIDE
  4. CETAPHIL                           /00498501/ [Concomitant]
     Dosage: UNK
  5. FLUOCINONIDE. [Concomitant]
     Active Substance: FLUOCINONIDE
     Dosage: 0.05 %, UNK
  6. PENTAMIDINE ISETHIONATE [Concomitant]
     Active Substance: PENTAMIDINE ISETHIONATE
     Dosage: 300 MG, UNK
  7. SORIATANE [Concomitant]
     Active Substance: ACITRETIN
     Dosage: UNK
  8. PROCRIT [Concomitant]
     Active Substance: ERYTHROPOIETIN
     Indication: MYELODYSPLASTIC SYNDROME
     Dosage: 40000 UNIT/MLUNK, UNK
  9. SYNTHROID [Concomitant]
     Active Substance: LEVOTHYROXINE SODIUM
     Dosage: UNK
  10. ASACOL [Concomitant]
     Active Substance: MESALAMINE
     Dosage: UNK
  11. ATARAX [Concomitant]
     Active Substance: HYDROXYZINE\HYDROXYZINE HYDROCHLORIDE
     Dosage: 10 MG, UNK Q 6 HOURS PRN
  12. ENBREL [Suspect]
     Active Substance: ETANERCEPT
     Indication: PSORIASIS
     Dosage: 50 MG, QWK
     Route: 058
  13. FOLIC ACID. [Concomitant]
     Active Substance: FOLIC ACID
     Dosage: UNK
  14. TRIAMCINOLONE [Concomitant]
     Active Substance: TRIAMCINOLONE
     Dosage: 0.1 %, BID 60GM
  15. LIDEX [Concomitant]
     Active Substance: FLUOCINONIDE
     Dosage: 0.05 %, UNK
  16. RAPTIVA [Concomitant]
     Active Substance: EFALIZUMAB
     Dosage: UNK
  17. VECTICAL [Concomitant]
     Active Substance: CALCITRIOL
     Dosage: 200 G, BID
  18. KEFLEX [Concomitant]
     Active Substance: CEPHALEXIN
     Dosage: 500 MG, BID
  19. APAP [Concomitant]
     Active Substance: ACETAMINOPHEN
     Dosage: 325 TO 650 MG, AS NEEDED.
  20. AZACITIDINE. [Concomitant]
     Active Substance: AZACITIDINE
     Dosage: 75 MG, UNK
     Route: 058
  21. ONDANSETRON [Concomitant]
     Active Substance: ONDANSETRON
     Dosage: 16 MG, UNK
  22. BETAMETHASONE. [Concomitant]
     Active Substance: BETAMETHASONE
     Dosage: UNK
  23. PREMPRO [Concomitant]
     Active Substance: ESTROGENS, CONJUGATED\MEDROXYPROGESTERONE ACETATE
     Dosage: UNK
  24. DEXAMETHASONE. [Concomitant]
     Active Substance: DEXAMETHASONE
     Dosage: 12 MG, UNK
     Route: 048
  25. REVLIMID [Suspect]
     Active Substance: LENALIDOMIDE
     Indication: MYELODYSPLASTIC SYNDROME
     Dosage: UNK
     Route: 065
  26. CLOBEX                             /00012002/ [Concomitant]
     Dosage: 8.5 OZ, BID
  27. VITAMIN B12 [Concomitant]
     Active Substance: CYANOCOBALAMIN
     Dosage: UNK
  28. KENALOG [Concomitant]
     Active Substance: TRIAMCINOLONE ACETONIDE
     Dosage: 20 MG/CC

REACTIONS (1)
  - Myelodysplastic syndrome [Fatal]
